FAERS Safety Report 25588593 (Version 1)
Quarter: 2025Q3

REPORT INFORMATION
  Report Type: Spontaneous
  Country: EU (occurrence: EU)
  Receive Date: 20250722
  Receipt Date: 20250722
  Transmission Date: 20251021
  Serious: Yes (Death)
  Sender: AMGEN
  Company Number: EU-DCGMA-25205548

PATIENT
  Age: 71 Year
  Sex: Male
  Weight: 64 kg

DRUGS (5)
  1. MVASI [Suspect]
     Active Substance: BEVACIZUMAB-AWWB
     Indication: Breast cancer female
     Route: 040
  2. MVASI [Suspect]
     Active Substance: BEVACIZUMAB-AWWB
     Indication: Renal cell carcinoma
  3. MVASI [Suspect]
     Active Substance: BEVACIZUMAB-AWWB
     Indication: Non-small cell lung cancer
  4. MVASI [Suspect]
     Active Substance: BEVACIZUMAB-AWWB
     Indication: Abdominal wall neoplasm
  5. MVASI [Suspect]
     Active Substance: BEVACIZUMAB-AWWB
     Indication: Fallopian tube cancer

REACTIONS (2)
  - Toxicity to various agents [Fatal]
  - Circulatory collapse [Fatal]

NARRATIVE: CASE EVENT DATE: 20250702
